FAERS Safety Report 4496709-4 (Version None)
Quarter: 2004Q4

REPORT INFORMATION
  Report Type: 
  Country: None (occurrence: None)
  Receive Date: 20041109
  Receipt Date: 20040707
  Transmission Date: 20050328
  Serious: Yes (Life-Threatening, Hospitalization, Disabling)
  Sender: FDA-Public Use
  Company Number: JP-BRISTOL-MYERS SQUIBB COMPANY-12639712

PATIENT
  Age: 46 Year
  Sex: Male

DRUGS (8)
  1. GATIFLO [Suspect]
     Indication: BRONCHITIS
     Route: 048
     Dates: start: 20040520, end: 20040602
  2. CLARITH [Suspect]
     Indication: BRONCHITIS
     Route: 048
     Dates: start: 20040603, end: 20040623
  3. MUCODYNE [Concomitant]
     Route: 048
  4. CHINESE HERBS [Concomitant]
     Route: 048
  5. UFT [Concomitant]
     Route: 048
     Dates: start: 20031030, end: 20040303
  6. RIZABEN [Concomitant]
     Route: 048
     Dates: start: 20031030, end: 20040407
  7. CYANOCOBALAMIN [Concomitant]
     Route: 048
     Dates: start: 20031030, end: 20040610
  8. ZYRTEC [Concomitant]
     Route: 048
     Dates: start: 20031030, end: 20040610

REACTIONS (9)
  - AGRANULOCYTOSIS [None]
  - ALANINE AMINOTRANSFERASE INCREASED [None]
  - ANOREXIA [None]
  - ASPARTATE AMINOTRANSFERASE INCREASED [None]
  - BLOOD ALKALINE PHOSPHATASE INCREASED [None]
  - BLOOD LACTATE DEHYDROGENASE INCREASED [None]
  - GAMMA-GLUTAMYLTRANSFERASE INCREASED [None]
  - HEPATIC FUNCTION ABNORMAL [None]
  - WHITE BLOOD CELL COUNT DECREASED [None]
